FAERS Safety Report 9033017 (Version 1)
Quarter: 2013Q1

REPORT INFORMATION
  Report Type: Spontaneous
  Country: BR (occurrence: None)
  Receive Date: 20130110
  Receipt Date: 20130110
  Transmission Date: 20140127
  Serious: Yes (Other)
  Sender: FDA-Public Use
  Company Number: DSA_61743_2013

PATIENT
  Sex: Male
  Weight: 82 kg

DRUGS (4)
  1. ENALAPRIL MALEATE (ENALAPRIL MALEATE) [Suspect]
     Indication: HYPERTENSION
     Route: 048
     Dates: start: 2009
  2. ENALAPRIL MALEATE (ENALAPRIL MALEATE) [Suspect]
     Indication: CARDIAC FAILURE CONGESTIVE
     Route: 048
     Dates: start: 2009
  3. METFORMIN [Concomitant]
  4. CARVEDILOL [Concomitant]

REACTIONS (1)
  - Bone marrow transplant [None]
